FAERS Safety Report 7182918-2 (Version None)
Quarter: 2010Q4

REPORT INFORMATION
  Report Type: 
  Country: None (occurrence: None)
  Receive Date: 20101209
  Receipt Date: 20101126
  Transmission Date: 20110411
  Serious: Yes (Other)
  Sender: FDA-Public Use
  Company Number: JP-1184248

PATIENT
  Age: 75 Year
  Sex: Female

DRUGS (1)
  1. TRAVATAN Z [Suspect]
     Indication: NORMAL TENSION GLAUCOMA
     Dosage: 1 GTT QD OPHTHALMIC
     Route: 047
     Dates: start: 20101101

REACTIONS (2)
  - ARRHYTHMIA [None]
  - EYE PAIN [None]
